FAERS Safety Report 14667204 (Version 1)
Quarter: 2018Q1

REPORT INFORMATION
  Report Type: Spontaneous
  Country: JP (occurrence: JP)
  Receive Date: 20180322
  Receipt Date: 20180322
  Transmission Date: 20180509
  Serious: Yes (Hospitalization)
  Sender: FDA-Public Use
  Company Number: JP-ORION CORPORATION ORION PHARMA-ENT 2018-0036

PATIENT
  Age: 79 Year
  Sex: Male

DRUGS (4)
  1. COMTAN [Suspect]
     Active Substance: ENTACAPONE
     Indication: PARKINSON^S DISEASE
     Route: 048
  2. MENESIT [Concomitant]
     Active Substance: CARBIDOPA\LEVODOPA
     Route: 065
  3. BI SIFROL [Concomitant]
     Active Substance: PRAMIPEXOLE
     Route: 065
  4. COMTAN [Suspect]
     Active Substance: ENTACAPONE
     Dosage: BEFORE GOING TO BED
     Route: 048

REACTIONS (1)
  - Cerebrovascular accident [Unknown]
